FAERS Safety Report 9812667 (Version 3)
Quarter: 2015Q4

REPORT INFORMATION
  Report Type: Report from Study
  Country: US (occurrence: US)
  Receive Date: 20140113
  Receipt Date: 20151014
  Transmission Date: 20160305
  Serious: Yes (Other)
  Sender: FDA-Public Use
  Company Number: US-ROCHE-1331705

PATIENT
  Sex: Female
  Weight: 129.2 kg

DRUGS (17)
  1. NAPROXEN. [Suspect]
     Active Substance: NAPROXEN
     Indication: PRODUCT USED FOR UNKNOWN INDICATION
     Route: 065
  2. CHLORPHENIRAMINE MALEATE. [Concomitant]
     Active Substance: CHLORPHENIRAMINE MALEATE
     Route: 065
     Dates: start: 20130402
  3. TYLENOL [Concomitant]
     Active Substance: ACETAMINOPHEN
     Route: 048
     Dates: start: 20100923
  4. MONTELUKAST SODIUM. [Concomitant]
     Active Substance: MONTELUKAST SODIUM
     Dosage: 1 TABLET AT BEDTIME
     Route: 048
     Dates: end: 20130218
  5. PROVENTIL HFA [Concomitant]
     Active Substance: ALBUTEROL SULFATE
     Dosage: 2 PUFFS EVERY 4 TO 6 HOURS
     Route: 048
     Dates: start: 20130220, end: 20131003
  6. BETADINE [Concomitant]
     Active Substance: POVIDONE-IODINE
  7. XOLAIR [Suspect]
     Active Substance: OMALIZUMAB
     Indication: ASTHMA
     Route: 058
     Dates: start: 20110330
  8. SYMBICORT [Concomitant]
     Active Substance: BUDESONIDE\FORMOTEROL FUMARATE DIHYDRATE
     Dosage: 160-4.5 MCG/ACT 2 PUFFS
     Route: 055
     Dates: start: 20131003
  9. ZYRTEC [Concomitant]
     Active Substance: CETIRIZINE HYDROCHLORIDE
     Indication: HYPERSENSITIVITY
     Route: 048
     Dates: start: 20120724
  10. VITAMIN B COMPLEX [Concomitant]
     Active Substance: CYANOCOBALAMIN\DEXPANTHENOL\NIACINAMIDE\PYRIDOXINE HYDROCHLORIDE\RIBOFLAVIN 5^-PHOSPHATE SODIUM\THIAMINE HYDROCHLORIDE\VITAMIN B COMPLEX
     Route: 048
  11. PNEUMOVAX 23 [Concomitant]
     Active Substance: PNEUMOCOCCAL VACCINE, POLYVALENT 23
  12. ALBUTEROL. [Suspect]
     Active Substance: ALBUTEROL
     Indication: COUGH
  13. XANAX [Concomitant]
     Active Substance: ALPRAZOLAM
     Route: 048
     Dates: start: 20100923
  14. FERROUS SULFATE [Concomitant]
     Active Substance: FERROUS SULFATE\FERROUS SULFATE, DRIED
     Route: 048
     Dates: start: 20110815
  15. ALBUTEROL. [Suspect]
     Active Substance: ALBUTEROL
     Indication: DYSPNOEA
     Dosage: 2 PUFFS MOST RECENT DOSE ON 04/JAN/2014. MDI
     Route: 065
     Dates: start: 20100923
  16. ALLEGRA [Concomitant]
     Active Substance: FEXOFENADINE HYDROCHLORIDE
     Route: 048
     Dates: start: 20130402
  17. EPIPEN [Concomitant]
     Active Substance: EPINEPHRINE
     Dosage: 0.3 MG/0.3 ML
     Route: 030
     Dates: start: 20120417, end: 20120417

REACTIONS (31)
  - Stridor [Unknown]
  - Bronchitis [Unknown]
  - Fall [Unknown]
  - Joint instability [Unknown]
  - Umbilical hernia [Unknown]
  - Chronic sinusitis [Unknown]
  - Sensation of foreign body [Unknown]
  - Anaphylactic reaction [Unknown]
  - Dysphagia [Unknown]
  - Mycotic allergy [Unknown]
  - Sinusitis [Unknown]
  - Nasal polyps [Unknown]
  - Asthma [Unknown]
  - Dysphonia [Unknown]
  - Menorrhagia [Unknown]
  - Obesity [Unknown]
  - Otitis media acute [Unknown]
  - Reflux laryngitis [Unknown]
  - Drug hypersensitivity [Unknown]
  - Uterine leiomyoma [Unknown]
  - Laryngeal oedema [Unknown]
  - Rhinitis allergic [Unknown]
  - Aspirin-exacerbated respiratory disease [Unknown]
  - Allergy to arthropod sting [Unknown]
  - Cerumen impaction [Unknown]
  - Wheezing [Unknown]
  - Laryngeal erythema [Unknown]
  - Rhinorrhoea [Unknown]
  - Productive cough [Unknown]
  - Allergy test positive [Unknown]
  - Balance disorder [Unknown]
